FAERS Safety Report 13183383 (Version 1)
Quarter: 2017Q1

REPORT INFORMATION
  Report Type: Spontaneous
  Country: US (occurrence: US)
  Receive Date: 20170203
  Receipt Date: 20170203
  Transmission Date: 20170428
  Serious: Yes (Disabling)
  Sender: FDA-Public Use
  Company Number: None

PATIENT

DRUGS (4)
  1. ONE A DAY LEMON [Concomitant]
  2. HYZAAR [Suspect]
     Active Substance: HYDROCHLOROTHIAZIDE\LOSARTAN POTASSIUM
     Indication: HYPERTENSION
     Dosage: ?          QUANTITY:AKING?WW3;?
     Route: 048
     Dates: start: 2000, end: 2015
  3. FISH OIL [Concomitant]
     Active Substance: FISH OIL
  4. NEXON [Concomitant]

REACTIONS (7)
  - Dysphonia [None]
  - Heart rate irregular [None]
  - Open angle glaucoma [None]
  - Headache [None]
  - Heart rate decreased [None]
  - Chest pain [None]
  - Dizziness [None]

NARRATIVE: CASE EVENT DATE: 2013
